FAERS Safety Report 4546654-0 (Version None)
Quarter: 2005Q1

REPORT INFORMATION
  Report Type: 
  Country: None (occurrence: None)
  Receive Date: 20050105
  Receipt Date: 20041221
  Transmission Date: 20050727
  Serious: Yes (Other)
  Sender: FDA-Public Use
  Company Number: 9548

PATIENT
  Age: 4 Month
  Sex: Male

DRUGS (2)
  1. CARBOPLATIN [Suspect]
     Indication: NEOPLASM PROGRESSION
     Dosage: 3.5 AUC
  2. VINCRISTINE [Suspect]
     Indication: NEOPLASM PROGRESSION
     Dosage: 0.05 MG/KG

REACTIONS (3)
  - BONE MARROW TOXICITY [None]
  - NEPHROPATHY TOXIC [None]
  - OTOTOXICITY [None]
